FAERS Safety Report 7744429-2 (Version None)
Quarter: 2011Q3

REPORT INFORMATION
  Report Type: 
  Country: None (occurrence: None)
  Receive Date: 20110912
  Receipt Date: 20110831
  Transmission Date: 20111222
  Serious: Yes (Hospitalization)
  Sender: FDA-Public Use
  Company Number: LT-UCBSA-8053270

PATIENT
  Sex: Female
  Weight: 61 kg

DRUGS (8)
  1. METHOTREXATE [Concomitant]
     Indication: RHEUMATOID ARTHRITIS
     Route: 048
     Dates: start: 20050221
  2. REGULON [Concomitant]
     Indication: CONTRACEPTION
     Route: 048
     Dates: start: 20010101
  3. CERTOLIZUMAB PEGOL [Suspect]
     Dosage: - NR OF DOSES :38
     Route: 058
     Dates: start: 20060522, end: 20071119
  4. CERTOLIZUMAB PEGOL [Suspect]
     Route: 058
     Dates: start: 20091116
  5. MELOXICAM [Concomitant]
     Indication: RHEUMATOID ARTHRITIS
     Route: 048
     Dates: start: 20001219
  6. CERTOLIZUMAB PEGOL [Suspect]
     Dosage: - NR OF DOSES :48
     Route: 058
     Dates: start: 20071203, end: 20091005
  7. FOLIC ACID [Concomitant]
     Indication: DRUG TOXICITY PROPHYLAXIS
     Route: 048
     Dates: start: 20010614
  8. CERTOLIZUMAB PEGOL [Suspect]
     Indication: RHEUMATOID ARTHRITIS
     Dosage: - NR OF DOSES :26
     Route: 058
     Dates: start: 20050523, end: 20060509

REACTIONS (2)
  - FOOT DEFORMITY [None]
  - POSTOPERATIVE WOUND INFECTION [None]
